FAERS Safety Report 21148804 (Version 1)
Quarter: 2022Q3

REPORT INFORMATION
  Report Type: Spontaneous
  Country: US (occurrence: None)
  Receive Date: 20220729
  Receipt Date: 20220729
  Transmission Date: 20221027
  Serious: Yes (Disabling, Other)
  Sender: FDA-Public Use
  Company Number: None

PATIENT
  Age: 25 Year
  Sex: Female
  Weight: 58.5 kg

DRUGS (1)
  1. GAVILYTE - C [Suspect]
     Active Substance: POLYETHYLENE GLYCOL 3350\POTASSIUM CHLORIDE\SODIUM BICARBONATE\SODIUM CHLORIDE\SODIUM SULFATE
     Indication: Colonoscopy
     Dosage: OTHER QUANTITY : 4 LITERS;?
     Route: 048

REACTIONS (10)
  - Nausea [None]
  - Pyrexia [None]
  - Chills [None]
  - Asthenia [None]
  - Movement disorder [None]
  - Vomiting [None]
  - Hypophagia [None]
  - Product taste abnormal [None]
  - Constipation [None]
  - Anal fissure [None]

NARRATIVE: CASE EVENT DATE: 20220313
